FAERS Safety Report 15356546 (Version 1)
Quarter: 2018Q4

REPORT INFORMATION
  Report Type: Other
  Country: IT (occurrence: IT)
  Receive Date: 20180906
  Receipt Date: 20180906
  Transmission Date: 20190204
  Serious: Yes (Life-Threatening, Other)
  Sender: FDA-Public Use
  Company Number: IT-MACLEODS PHARMACEUTICALS US LTD-MAC2018016515

PATIENT

DRUGS (7)
  1. L-THYROXINE SODIUM [Suspect]
     Active Substance: LEVOTHYROXINE SODIUM
     Indication: PRODUCT USED FOR UNKNOWN INDICATION
     Dosage: 3.15 MILLIGRAM
     Route: 048
     Dates: start: 20180403, end: 20180403
  2. AMOXICILLIN/CLAVULANATE POTASSIUM 875/125MG FILM COATED TABLET [Suspect]
     Active Substance: AMOXICILLIN\CLAVULANATE POTASSIUM
     Indication: PRODUCT USED FOR UNKNOWN INDICATION
     Dosage: ABUSE / MISUSE
     Route: 048
     Dates: start: 20180403, end: 20180403
  3. IBUPROFEN. [Suspect]
     Active Substance: IBUPROFEN
     Indication: PRODUCT USED FOR UNKNOWN INDICATION
     Dosage: ABUSE / MISUSE
     Route: 048
  4. OLMESARTAN [Suspect]
     Active Substance: OLMESARTAN
     Indication: PRODUCT USED FOR UNKNOWN INDICATION
     Dosage: ABUSE / MISUSE
     Route: 048
     Dates: start: 20180403, end: 20180403
  5. PARACETAMOL [Suspect]
     Active Substance: ACETAMINOPHEN
     Indication: PRODUCT USED FOR UNKNOWN INDICATION
     Dosage: ABUSE / MISUSE
     Route: 048
     Dates: start: 20180403, end: 20180403
  6. ZERINOLFLU EFFERVESCENT TABLETS [Suspect]
     Active Substance: ACETAMINOPHEN\CHLORPHENIRAMINE MALEATE\SODIUM ASCORBATE
     Indication: PRODUCT USED FOR UNKNOWN INDICATION
     Dosage: ABUSE / MISUSE
     Route: 048
     Dates: start: 20180403, end: 20180403
  7. CETIRIZINE [Suspect]
     Active Substance: CETIRIZINE HYDROCHLORIDE
     Indication: PRODUCT USED FOR UNKNOWN INDICATION
     Dosage: ABUSE / MISUSE
     Route: 048
     Dates: start: 20180403, end: 20180403

REACTIONS (3)
  - Drug abuse [Recovered/Resolved]
  - Coma [Recovered/Resolved]
  - Psychomotor hyperactivity [Recovered/Resolved]

NARRATIVE: CASE EVENT DATE: 20180403
